FAERS Safety Report 6993997-7 (Version None)
Quarter: 2010Q3

REPORT INFORMATION
  Report Type: 
  Country: None (occurrence: None)
  Receive Date: 20100917
  Receipt Date: 20100706
  Transmission Date: 20110219
  Serious: No
  Sender: FDA-Public Use
  Company Number: US-ASTRAZENECA-2010SE31468

PATIENT
  Age: 53 Year
  Sex: Male
  Weight: 95.3 kg

DRUGS (1)
  1. SEROQUEL [Suspect]
     Indication: BIPOLAR DISORDER
     Route: 048
     Dates: start: 20050101

REACTIONS (3)
  - ARTHRITIS [None]
  - EXOSTOSIS [None]
  - SPONDYLITIS [None]
